FAERS Safety Report 7973920-9 (Version None)
Quarter: 2011Q4

REPORT INFORMATION
  Report Type: 
  Country: None (occurrence: None)
  Receive Date: 20111213
  Receipt Date: 20111128
  Transmission Date: 20120403
  Serious: Yes (Hospitalization)
  Sender: FDA-Public Use
  Company Number: US-ROCHE-1017006

PATIENT
  Sex: Female

DRUGS (14)
  1. PLAVIX [Concomitant]
  2. FORTEO [Suspect]
     Dosage: DOSE; UNKNOWN
  3. CENTRUM SILVER [Concomitant]
  4. BONIVA [Suspect]
     Indication: PRODUCT USED FOR UNKNOWN INDICATION
  5. FORTEO [Suspect]
  6. ASCORBIC ACID [Concomitant]
  7. PRAVACHOL [Concomitant]
  8. TOPROL-XL [Concomitant]
  9. CITRACAL [Concomitant]
  10. FORTEO [Suspect]
     Dosage: RESTARTED
  11. FORTEO [Suspect]
  12. NORVASC [Concomitant]
  13. FORTEO [Suspect]
     Indication: OSTEOPOROSIS
     Dates: start: 20100126
  14. DIAZEPAM [Concomitant]

REACTIONS (17)
  - PAIN IN EXTREMITY [None]
  - RASH [None]
  - PROCTALGIA [None]
  - POOR QUALITY SLEEP [None]
  - ARTHRALGIA [None]
  - BLADDER PROLAPSE [None]
  - URETHRAL DISORDER [None]
  - ADVERSE DRUG REACTION [None]
  - NAUSEA [None]
  - BLADDER DISORDER [None]
  - UTERINE PROLAPSE [None]
  - ERYTHEMA [None]
  - MUSCLE SPASMS [None]
  - PRURITUS [None]
  - FATIGUE [None]
  - DIZZINESS POSTURAL [None]
  - FEAR [None]
